FAERS Safety Report 11296497 (Version 1)
Quarter: 2015Q3

REPORT INFORMATION
  Report Type: Spontaneous
  Country: US (occurrence: US)
  Receive Date: 20150722
  Receipt Date: 20150722
  Transmission Date: 20151125
  Serious: No
  Sender: FDA-Public Use
  Company Number: US-ELI_LILLY_AND_COMPANY-US201003006130

PATIENT
  Age: 60 Year
  Sex: Male

DRUGS (12)
  1. EFFIENT [Suspect]
     Active Substance: PRASUGREL HYDROCHLORIDE
     Indication: CORONARY ARTERY DISEASE
     Dosage: 10 MG, UNKNOWN
     Route: 065
     Dates: start: 20090923, end: 20100317
  2. NITROSTAT [Concomitant]
     Active Substance: NITROGLYCERIN
     Dosage: UNK, AS NEEDED
  3. DIGITEK [Concomitant]
     Active Substance: DIGOXIN
     Dosage: 125 UNK, DAILY (1/D)
     Route: 065
  4. DARVOCET [Concomitant]
     Active Substance: ACETAMINOPHEN\PROPOXYPHENE HYDROCHLORIDE
     Dosage: UNK, AS NEEDED
  5. LIPITOR [Concomitant]
     Active Substance: ATORVASTATIN CALCIUM
     Dosage: UNK, EACH EVENING
     Route: 065
  6. PREDNISONE. [Concomitant]
     Active Substance: PREDNISONE
     Dosage: UNK, AS NEEDED
  7. VITAMIN C [Concomitant]
     Active Substance: ASCORBIC ACID
     Dosage: UNK, UNKNOWN
  8. ASPIRIN. [Concomitant]
     Active Substance: ASPIRIN
     Dosage: UNK, DAILY (1/D)
  9. MAGNESIUM [Concomitant]
     Active Substance: MAGNESIUM
     Dosage: UNK, DAILY (1/D)
  10. BIDIL [Concomitant]
     Active Substance: HYDRALAZINE HYDROCHLORIDE\ISOSORBIDE DINITRATE
     Dosage: 20 MG, 3/D
     Route: 065
  11. PRILOSEC [Concomitant]
     Active Substance: OMEPRAZOLE MAGNESIUM
     Dosage: UNK, UNKNOWN
  12. SOTALOL. [Concomitant]
     Active Substance: SOTALOL
     Dosage: UNK, 2/D

REACTIONS (3)
  - Haemorrhage [Unknown]
  - Contusion [Unknown]
  - Animal scratch [Unknown]

NARRATIVE: CASE EVENT DATE: 20100317
